FAERS Safety Report 14144356 (Version 1)
Quarter: 2017Q4

REPORT INFORMATION
  Report Type: Spontaneous
  Country: US (occurrence: US)
  Receive Date: 20171031
  Receipt Date: 20171031
  Transmission Date: 20180321
  Serious: No
  Sender: FDA-Public Use
  Company Number: US-PFIZER INC-2017467260

PATIENT
  Age: 59 Year
  Sex: Male

DRUGS (12)
  1. AMLODIPINE [Concomitant]
     Active Substance: AMLODIPINE BESYLATE
     Indication: HYPERTENSION
     Dosage: 10MG, TABLET, ONCE A DAY
     Route: 048
     Dates: start: 2002
  2. CYCLOBENZAPRINE. [Concomitant]
     Active Substance: CYCLOBENZAPRINE
     Indication: MUSCLE SPASMS
     Dosage: 10MG, TABLET, AS NEEDED
     Route: 048
  3. BRILINTA [Concomitant]
     Active Substance: TICAGRELOR
     Indication: BLOOD DISORDER
     Dosage: 60MG TABLETS, TWICE A DAY
     Route: 048
     Dates: start: 2015
  4. LOSARTAN HCT PFIZER [Concomitant]
     Indication: BLOOD PRESSURE ABNORMAL
     Dosage: 10-25MG, TABLET, ONCE A DAY
     Route: 048
     Dates: start: 2012
  5. CARVEDILOL. [Concomitant]
     Active Substance: CARVEDILOL
     Indication: BLOOD PRESSURE ABNORMAL
     Dosage: 3.125MG, TABLET, ONCE A DAY
     Route: 048
     Dates: start: 2007
  6. SUCRALFATE. [Concomitant]
     Active Substance: SUCRALFATE
     Indication: GASTROOESOPHAGEAL REFLUX DISEASE
     Dosage: 1GRAM/10ML, SUSP, AS NEEDED, BY MOUTH
     Route: 048
  7. NICOTROL [Suspect]
     Active Substance: NICOTINE
     Indication: SMOKING CESSATION THERAPY
     Dosage: 2 SQUIRTS IN EACH NOSTRIL EVERY HOUR
     Route: 045
     Dates: start: 201612, end: 201612
  8. KLOR CON M [Concomitant]
     Active Substance: POTASSIUM CHLORIDE
     Indication: BLOOD CHOLESTEROL ABNORMAL
     Dosage: 10MEQ, TABLET, ONCE A DAY
     Route: 048
     Dates: start: 2012
  9. NEXIUM [Concomitant]
     Active Substance: ESOMEPRAZOLE MAGNESIUM
     Indication: ABDOMINAL PAIN UPPER
     Dosage: 40MG, CAPSULE, BY MOUTH, AS NEEDED
     Route: 048
  10. ASPIRIN /00002701/ [Concomitant]
     Active Substance: ASPIRIN
     Indication: CARDIAC DISORDER
     Dosage: 81MG, TABLET,ONCE A DAY
     Route: 048
  11. PERCOCET [Concomitant]
     Active Substance: ACETAMINOPHEN\OXYCODONE HYDROCHLORIDE
     Indication: PAIN
     Dosage: [OXYCODONE HYDROCHLORIDE 10MG]/[PARACETAMOL 325MG], TWICE A DAY BY MOUTH
     Route: 048
     Dates: start: 2013
  12. ATORVASTATIN [Concomitant]
     Active Substance: ATORVASTATIN
     Indication: BLOOD POTASSIUM ABNORMAL
     Dosage: 80MG, TABLET, ONCE A DAY
     Route: 048
     Dates: start: 2015

REACTIONS (1)
  - Epistaxis [Recovered/Resolved]

NARRATIVE: CASE EVENT DATE: 201612
